FAERS Safety Report 25162736 (Version 2)
Quarter: 2025Q2

REPORT INFORMATION
  Report Type: Spontaneous
  Country: US (occurrence: US)
  Receive Date: 20250404
  Receipt Date: 20250422
  Transmission Date: 20250717
  Serious: No
  Sender: EISAI
  Company Number: US-Eisai-EC-2025-186836

PATIENT
  Age: 79 Year
  Sex: Male
  Weight: 72 kg

DRUGS (1)
  1. LEQEMBI [Suspect]
     Active Substance: LECANEMAB-IRMB
     Indication: Dementia Alzheimer^s type
     Dates: start: 20240306

REACTIONS (2)
  - Amyloid related imaging abnormality-oedema/effusion [Unknown]
  - Amyloid related imaging abnormality-microhaemorrhages and haemosiderin deposits [Unknown]

NARRATIVE: CASE EVENT DATE: 20250327
